FAERS Safety Report 17122875 (Version 3)
Quarter: 2022Q2

REPORT INFORMATION
  Report Type: Other
  Country: US (occurrence: None)
  Receive Date: 20191206
  Receipt Date: 20220512
  Transmission Date: 20220721
  Serious: No
  Sender: FDA-Public Use
  Company Number: US-ROCHE-2345130

PATIENT
  Age: 33 Year
  Sex: Female
  Weight: 91.254 kg

DRUGS (10)
  1. OCREVUS [Suspect]
     Active Substance: OCRELIZUMAB
     Indication: Relapsing-remitting multiple sclerosis
     Route: 042
     Dates: start: 20180611, end: 20180626
  2. OCREVUS [Suspect]
     Active Substance: OCRELIZUMAB
     Dosage: MOST RECENT DOSES OF OCRELIZUMAB: 03/JUL/2019 HALF DOSE AT SLOWER RATE, 22/JUL/2019
     Route: 042
     Dates: start: 20181211
  3. OCREVUS [Suspect]
     Active Substance: OCRELIZUMAB
     Dosage: FOR FIRST 2 INITIAL OCREVUS SPLIT DOSES
     Route: 042
     Dates: start: 20181211, end: 201812
  4. OCREVUS [Suspect]
     Active Substance: OCRELIZUMAB
     Route: 042
     Dates: start: 201906, end: 201906
  5. OCREVUS [Suspect]
     Active Substance: OCRELIZUMAB
     Dosage: 300 MG SPLIT DOSES GIVEN TWO WEEKS APART
     Route: 042
     Dates: start: 201912
  6. AMPYRA [Concomitant]
     Active Substance: DALFAMPRIDINE
     Route: 048
     Dates: start: 2015
  7. AMPYRA [Concomitant]
     Active Substance: DALFAMPRIDINE
     Route: 048
  8. NAPROXEN [Concomitant]
     Active Substance: NAPROXEN
     Indication: Pain
     Route: 048
     Dates: start: 2018
  9. TYLENOL [Concomitant]
     Active Substance: ACETAMINOPHEN
     Route: 048
  10. MOTRIN [Concomitant]
     Active Substance: IBUPROFEN

REACTIONS (16)
  - Chest pain [Recovered/Resolved]
  - Dizziness [Unknown]
  - Nausea [Unknown]
  - Influenza [Recovered/Resolved]
  - Anxiety [Not Recovered/Not Resolved]
  - Intentional product misuse [Unknown]
  - Off label use [Unknown]
  - Intentional product use issue [Unknown]
  - Muscle spasms [Unknown]
  - Chest pain [Unknown]
  - Tooth abscess [Unknown]
  - Heart rate increased [Not Recovered/Not Resolved]
  - Palpitations [Not Recovered/Not Resolved]
  - Panic attack [Not Recovered/Not Resolved]
  - Injection site extravasation [Recovering/Resolving]
  - Fatigue [Not Recovered/Not Resolved]

NARRATIVE: CASE EVENT DATE: 20180701
